FAERS Safety Report 5896406-4 (Version None)
Quarter: 2008Q3

REPORT INFORMATION
  Report Type: 
  Country: None (occurrence: None)
  Receive Date: 20080924
  Receipt Date: 20070731
  Transmission Date: 20090109
  Serious: No
  Sender: FDA-Public Use
  Company Number: US-BAYER-200711646BWH

PATIENT
  Age: 48 Year
  Sex: Male

DRUGS (7)
  1. AVELOX [Suspect]
     Indication: SINUSITIS
     Route: 048
     Dates: start: 20070401, end: 20070401
  2. SALINE SPRAY [Concomitant]
  3. NASACORT AQ [Concomitant]
  4. CLARINEX [Concomitant]
  5. ADVAIR DISKUS 100/50 [Concomitant]
     Route: 055
  6. NEXIUM [Concomitant]
  7. ALBUTEROL [Concomitant]

REACTIONS (2)
  - PRESBYOPIA [None]
  - VISION BLURRED [None]
